FAERS Safety Report 8785859 (Version 6)
Quarter: 2013Q3

REPORT INFORMATION
  Report Type: Report from Study
  Country: JP (occurrence: JP)
  Receive Date: 20120914
  Receipt Date: 20130905
  Transmission Date: 20140515
  Serious: Yes (Death, Disabling)
  Sender: FDA-Public Use
  Company Number: JP-VERTEX PHARMACEUTICAL INC.-AE-2012-010887

PATIENT
  Age: 65 Year
  Sex: Male

DRUGS (6)
  1. VX-950 (TELAPREVIR) [Suspect]
     Indication: CHRONIC HEPATITIS C
     Dosage: 2250 MG, QD
     Route: 048
     Dates: start: 20120605, end: 20130709
  2. RIBAVIRIN [Suspect]
     Indication: CHRONIC HEPATITIS C
     Dosage: 400 MG, QD
     Route: 048
     Dates: start: 20120605, end: 20130709
  3. PEGINTRON [Suspect]
     Indication: CHRONIC HEPATITIS C
     Dosage: 1.5 ?G/KG, WEEKLY
     Route: 058
     Dates: start: 20120605, end: 20120625
  4. PEGINTRON [Suspect]
     Dosage: 50 ?G, WEEK
     Route: 058
     Dates: start: 20120626, end: 20130703
  5. SEIBULE [Concomitant]
     Dosage: 150 MG, UNK
     Route: 048
     Dates: end: 20121021
  6. METGLUCO [Concomitant]
     Dosage: 750 MG, UNK
     Route: 048
     Dates: end: 20121021

REACTIONS (2)
  - Hepatic cancer [Fatal]
  - Anaemia [Not Recovered/Not Resolved]
